FAERS Safety Report 8003359-1 (Version None)
Quarter: 2011Q4

REPORT INFORMATION
  Report Type: 
  Country: None (occurrence: None)
  Receive Date: 20111222
  Receipt Date: 20111214
  Transmission Date: 20120403
  Serious: Yes (Hospitalization, Other)
  Sender: FDA-Public Use
  Company Number: US-ABBOTT-11P-163-0841866-01

PATIENT
  Sex: Female

DRUGS (16)
  1. PREDNISONE TAB [Concomitant]
     Indication: CROHN'S DISEASE
  2. HUMIRA [Suspect]
     Indication: CROHN'S DISEASE
     Dosage: BASELINE
     Route: 058
  3. HUMIRA [Suspect]
     Dosage: WEEK 2
     Route: 058
  4. HUMIRA [Suspect]
     Route: 058
     Dates: start: 20091104, end: 20091211
  5. HUMIRA [Suspect]
     Route: 058
     Dates: start: 20100104, end: 20100202
  6. HYDROXYZINE [Concomitant]
     Indication: PRODUCT USED FOR UNKNOWN INDICATION
  7. ZYRTEC [Concomitant]
     Indication: HYPERSENSITIVITY
  8. LOMOTIL [Concomitant]
     Indication: DIARRHOEA
  9. METOPROLOL [Concomitant]
     Indication: HYPERTENSION
  10. CLONAZEPAM [Concomitant]
     Indication: RESTLESS LEGS SYNDROME
  11. ELMIRON [Concomitant]
     Indication: CYSTITIS INTERSTITIAL
  12. PROSED/DS [Concomitant]
     Indication: TUBULOINTERSTITIAL NEPHRITIS
  13. HUMIRA [Concomitant]
     Indication: CROHN'S DISEASE
     Route: 058
     Dates: start: 20091020
  14. ASPIRIN [Concomitant]
     Indication: MYOCARDIAL INFARCTION
  15. REMICADE [Concomitant]
     Indication: CROHN'S DISEASE
  16. NEXIUM [Concomitant]
     Indication: DYSPEPSIA

REACTIONS (1)
  - CROHN'S DISEASE [None]
